FAERS Safety Report 10846260 (Version 1)
Quarter: 2015Q1

REPORT INFORMATION
  Report Type: Report from Study
  Country: US (occurrence: US)
  Receive Date: 20150220
  Receipt Date: 20150220
  Transmission Date: 20150721
  Serious: No
  Sender: FDA-Public Use
  Company Number: US-ABBVIE-15K-163-1329557-00

PATIENT
  Age: 82 Year
  Sex: Female

DRUGS (1)
  1. HUMIRA [Suspect]
     Active Substance: ADALIMUMAB
     Indication: RHEUMATOID ARTHRITIS
     Route: 065
     Dates: start: 20131113

REACTIONS (4)
  - Drug ineffective [Recovering/Resolving]
  - Back pain [Recovering/Resolving]
  - Injection site bruising [Recovered/Resolved]
  - Injection site pain [Recovered/Resolved]

NARRATIVE: CASE EVENT DATE: 20131113
